FAERS Safety Report 16957056 (Version 1)
Quarter: 2019Q4

REPORT INFORMATION
  Report Type: Other
  Country: PT (occurrence: PT)
  Receive Date: 20191024
  Receipt Date: 20191024
  Transmission Date: 20200122
  Serious: Yes (Hospitalization, Other)
  Sender: FDA-Public Use
  Company Number: PT-GUARDIAN DRUG COMPANY-2076010

PATIENT
  Age: 45 Year
  Sex: Male

DRUGS (3)
  1. CHILDRENS IBUPROFEN [Suspect]
     Active Substance: IBUPROFEN
     Indication: PRODUCT USED FOR UNKNOWN INDICATION
     Route: 065
  2. ALLOPURINOL. [Suspect]
     Active Substance: ALLOPURINOL
     Route: 065
  3. RILMENIDIN [Concomitant]
     Active Substance: RILMENIDINE
     Route: 065

REACTIONS (3)
  - Chronic kidney disease [Recovering/Resolving]
  - Self-medication [Unknown]
  - Tubulointerstitial nephritis [Recovering/Resolving]
